FAERS Safety Report 23977403 (Version 1)
Quarter: 2024Q2

REPORT INFORMATION
  Report Type: Spontaneous
  Country: US (occurrence: US)
  Receive Date: 20240614
  Receipt Date: 20240614
  Transmission Date: 20240715
  Serious: Yes (Other)
  Sender: FDA-Public Use
  Company Number: US-BRISTOL-MYERS SQUIBB COMPANY-2024-094217

PATIENT
  Age: 72 Year
  Sex: Female
  Weight: 92.53 kg

DRUGS (1)
  1. POMALYST [Suspect]
     Active Substance: POMALIDOMIDE
     Indication: Plasma cell myeloma
     Dosage: FREQ: 21 DAYS AND 7 DAYS OFF
     Route: 048
     Dates: start: 20240511

REACTIONS (2)
  - Plasma cell myeloma [Unknown]
  - Swelling [Unknown]

NARRATIVE: CASE EVENT DATE: 20240604
